FAERS Safety Report 5825573-3 (Version None)
Quarter: 2008Q3

REPORT INFORMATION
  Report Type: 
  Country: None (occurrence: None)
  Receive Date: 20080723
  Receipt Date: 20080716
  Transmission Date: 20090109
  Serious: Yes (Hospitalization)
  Sender: FDA-Public Use
  Company Number: 2008SP014536

PATIENT
  Age: 65 Year
  Sex: Male

DRUGS (2)
  1. PEG-INTRON [Suspect]
     Indication: HEPATITIS C
     Dates: start: 20070601, end: 20070901
  2. RIBAVIRIN [Suspect]
     Indication: HEPATITIS C
     Dosage: PO
     Route: 048
     Dates: start: 20070601, end: 20070901

REACTIONS (6)
  - ANAEMIA [None]
  - ASTHENIA [None]
  - DIVERTICULUM [None]
  - LETHARGY [None]
  - VIRAL LOAD INCREASED [None]
  - WEIGHT INCREASED [None]
